FAERS Safety Report 23852986 (Version 1)
Quarter: 2024Q2

REPORT INFORMATION
  Report Type: Report from Study
  Country: GB (occurrence: None)
  Receive Date: 20240514
  Receipt Date: 20240514
  Transmission Date: 20240716
  Serious: Yes (Life-Threatening)
  Sender: FDA-Public Use
  Company Number: 2024A112602

PATIENT
  Sex: Female

DRUGS (2)
  1. CALQUENCE [Suspect]
     Active Substance: ACALABRUTINIB
     Indication: Marginal zone lymphoma
     Route: 048
     Dates: end: 202401
  2. CALQUENCE [Suspect]
     Active Substance: ACALABRUTINIB
     Indication: Marginal zone lymphoma
     Route: 048
     Dates: start: 2024

REACTIONS (1)
  - Pneumonia [Unknown]

NARRATIVE: CASE EVENT DATE: 20240101
